FAERS Safety Report 6403564-1 (Version None)
Quarter: 2009Q4

REPORT INFORMATION
  Report Type: 
  Country: None (occurrence: None)
  Receive Date: 20091015
  Receipt Date: 20091015
  Transmission Date: 20100525
  Serious: Yes (Other)
  Sender: FDA-Public Use
  Company Number: None

PATIENT
  Age: 53 Year
  Sex: Male
  Weight: 75 kg

DRUGS (1)
  1. HALOPERIDOL 5MG [Suspect]
     Indication: SCHIZOPHRENIA
     Dosage: 5MG BID PO
     Route: 048
     Dates: start: 20090101, end: 20090904

REACTIONS (2)
  - INFECTION [None]
  - WHITE BLOOD CELL COUNT DECREASED [None]
